FAERS Safety Report 8000932-1 (Version None)
Quarter: 2011Q4

REPORT INFORMATION
  Report Type: 
  Country: None (occurrence: None)
  Receive Date: 20111219
  Receipt Date: 20111205
  Transmission Date: 20120403
  Serious: Yes (Hospitalization, Other)
  Sender: FDA-Public Use
  Company Number: 2011MA017228

PATIENT

DRUGS (40)
  1. DIGOXIN [Suspect]
     Dosage: 0.25 MG;QD;PO
     Route: 048
     Dates: start: 19700101, end: 20080514
  2. CARDURA [Concomitant]
  3. ALLOPURINOL [Concomitant]
  4. ANCEF [Concomitant]
  5. CODEINE [Concomitant]
  6. COREG [Concomitant]
  7. FLAGYL [Concomitant]
  8. HYZAAR [Concomitant]
  9. PLAQUENIL [Concomitant]
  10. ROCEPHIN [Concomitant]
  11. AMPICILLIN [Concomitant]
  12. COZAAR [Concomitant]
  13. LAMISIL [Concomitant]
  14. LOMOTIL [Concomitant]
  15. PROMETHAZINE [Concomitant]
  16. QUESTRAN [Concomitant]
  17. XYLOCAINE [Concomitant]
  18. CALCIUM CHLORIDE [Concomitant]
  19. COUMADIN [Concomitant]
  20. CHONDROITIN [Concomitant]
  21. LASIX [Concomitant]
  22. LEVAQUIN [Concomitant]
  23. MAGNESIUM SULFATE [Concomitant]
  24. MIRALAX [Concomitant]
  25. PROTONIX [Concomitant]
  26. ZOFRAN [Concomitant]
  27. L-LYSINE [Concomitant]
  28. TEMAZEPAM [Concomitant]
  29. VITAMIN B-12 [Concomitant]
  30. FLOMAX [Concomitant]
  31. GLUCOSAMINE [Concomitant]
  32. POTASSIUM CHLORIDE [Concomitant]
  33. APAP TAB [Concomitant]
  34. ARAMINE [Concomitant]
  35. CLARINEX [Concomitant]
  36. FLEETS [Concomitant]
  37. METAMUCIL-2 [Concomitant]
  38. PHOSPHOROUS [Concomitant]
  39. DULCOLAX [Concomitant]
  40. TOBRAMYCIN [Concomitant]

REACTIONS (39)
  - DEHYDRATION [None]
  - ANAEMIA [None]
  - ATRIAL FIBRILLATION [None]
  - BLOOD ELECTROLYTES ABNORMAL [None]
  - MUSCULAR WEAKNESS [None]
  - INFECTION [None]
  - ACUTE PRERENAL FAILURE [None]
  - POLYDIPSIA [None]
  - WEIGHT DECREASED [None]
  - GAIT DISTURBANCE [None]
  - BLOOD POTASSIUM DECREASED [None]
  - HYPERTENSION [None]
  - DIVERTICULUM [None]
  - LYMPHADENOPATHY [None]
  - MUSCULOSKELETAL CHEST PAIN [None]
  - ACTIVATED PARTIAL THROMBOPLASTIN TIME PROLONGED [None]
  - ANXIETY [None]
  - CONFUSIONAL STATE [None]
  - MUSCLE ATROPHY [None]
  - HYPOKALAEMIA [None]
  - SICK SINUS SYNDROME [None]
  - RENAL FAILURE ACUTE [None]
  - PNEUMONIA [None]
  - CONSTIPATION [None]
  - RESPIRATION ABNORMAL [None]
  - GASTROENTERITIS [None]
  - BENIGN PROSTATIC HYPERPLASIA [None]
  - PAIN [None]
  - CONTUSION [None]
  - GASTROINTESTINAL SOUNDS ABNORMAL [None]
  - TACHYCARDIA [None]
  - OSTEOARTHRITIS [None]
  - SMALL INTESTINAL OBSTRUCTION [None]
  - SEPSIS [None]
  - HYPERGLYCAEMIA [None]
  - DIVERTICULITIS [None]
  - HAEMORRHAGE [None]
  - SKIN CANCER [None]
  - STRESS [None]
